FAERS Safety Report 8188407-0 (Version None)
Quarter: 2012Q1

REPORT INFORMATION
  Report Type: 
  Country: None (occurrence: None)
  Receive Date: 20120306
  Receipt Date: 20120224
  Transmission Date: 20120608
  Serious: Yes (Hospitalization)
  Sender: FDA-Public Use
  Company Number: PHHY2012FR016837

PATIENT
  Sex: Female

DRUGS (12)
  1. PRAVASTATIN [Concomitant]
     Dosage: 40 MG, QD
  2. OXAZEPAM [Concomitant]
     Dosage: 10 MG, QD
     Dates: end: 20120124
  3. MIRTAZAPINE [Suspect]
     Indication: DEPRESSION
     Dosage: 15 MG, QD
     Dates: end: 20120127
  4. LACTULOSE [Concomitant]
     Dosage: 1 DF, TID
  5. SPIRONOLACTONE [Concomitant]
  6. CLOPIDOGREL [Concomitant]
     Indication: HYPERTENSION
     Dosage: 1 DF, QD
  7. STALEVO 100 [Suspect]
     Dosage: UNK
     Route: 048
     Dates: start: 20111201, end: 20120126
  8. IMOVANE [Concomitant]
     Dosage: 7.5 MG, QD
  9. STALEVO 100 [Suspect]
     Indication: PARKINSON'S DISEASE
     Dosage: 1 DF, 5QD
     Route: 048
  10. POLYETHYLENE GLYCOL [Concomitant]
     Indication: CONSTIPATION
     Dosage: UNK, 1 TO 2 DF DAILY
  11. RABEPRAZOLE SODIUM [Concomitant]
     Dosage: 10 MG, QD
  12. ALTIZIDE [Concomitant]
     Indication: HYPERTENSION
     Dosage: UNK, 25/15 MG
     Dates: end: 20120127

REACTIONS (14)
  - MINI MENTAL STATUS EXAMINATION ABNORMAL [None]
  - HYPONATRAEMIA [None]
  - SKIN EXFOLIATION [None]
  - PSYCHIATRIC SYMPTOM [None]
  - DISORIENTATION [None]
  - GENERAL PHYSICAL HEALTH DETERIORATION [None]
  - GLOSSODYNIA [None]
  - BLOOD PRESSURE INCREASED [None]
  - DECREASED APPETITE [None]
  - FALL [None]
  - MALIGNANT PERITONEAL NEOPLASM [None]
  - ASTHENIA [None]
  - PSYCHOMOTOR RETARDATION [None]
  - WEIGHT DECREASED [None]
